FAERS Safety Report 23197036 (Version 1)
Quarter: 2023Q4

REPORT INFORMATION
  Report Type: Spontaneous
  Country: CN (occurrence: CN)
  Receive Date: 20231117
  Receipt Date: 20231117
  Transmission Date: 20240109
  Serious: Yes (Other)
  Sender: FDA-Public Use
  Company Number: CN-PFIZER INC-PV202300184955

PATIENT
  Age: 73 Year
  Sex: Female

DRUGS (1)
  1. ZITHROMAX [Suspect]
     Active Substance: AZITHROMYCIN DIHYDRATE
     Indication: Pneumonia
     Dosage: 0.5 G, QD
     Route: 048
     Dates: start: 20231031, end: 20231104

REACTIONS (3)
  - Myocardial necrosis marker increased [Recovered/Resolved]
  - Muscle enzyme increased [Recovering/Resolving]
  - Off label use [Unknown]

NARRATIVE: CASE EVENT DATE: 20231101
